FAERS Safety Report 10935734 (Version 2)
Quarter: 2015Q1

REPORT INFORMATION
  Report Type: Spontaneous
  Country: US (occurrence: US)
  Receive Date: 20150320
  Receipt Date: 20150326
  Transmission Date: 20150721
  Serious: Yes (Life-Threatening, Hospitalization)
  Sender: FDA-Public Use
  Company Number: US-ASTELLAS-2015US008446

PATIENT
  Age: 73 Year
  Sex: Male

DRUGS (1)
  1. PROGRAF [Suspect]
     Active Substance: TACROLIMUS\TACROLIMUS ANHYDROUS
     Indication: LIVER TRANSPLANT
     Dosage: 0.5 MG, THRICE WEEKLY (ALTERNATE DAYS)
     Route: 065

REACTIONS (3)
  - Surgery [Unknown]
  - Respiratory distress [Unknown]
  - Inappropriate schedule of drug administration [Unknown]
